FAERS Safety Report 4845286-4 (Version None)
Quarter: 2005Q4

REPORT INFORMATION
  Report Type: 
  Country: None (occurrence: None)
  Receive Date: 20051129
  Receipt Date: 20051114
  Transmission Date: 20060501
  Serious: No
  Sender: FDA-Public Use
  Company Number: USA0510111099

PATIENT
  Age: 40 Year
  Sex: Female

DRUGS (10)
  1. CYMBALTA [Suspect]
     Indication: IRRITABLE BOWEL SYNDROME
     Dosage: 60 MG
     Dates: start: 20040101
  2. ZOLOFT [Concomitant]
  3. MERCAPTOPURINE [Concomitant]
  4. NEXIUM [Concomitant]
  5. BECONASE (BECLOMETASONE DIPROPIONATE) [Concomitant]
  6. ALLEGRA [Concomitant]
  7. ACTONEL [Concomitant]
  8. BUDESONIDE [Concomitant]
  9. REMICADE [Concomitant]
  10. IMURAN [Concomitant]

REACTIONS (3)
  - HEPATIC STEATOSIS [None]
  - SCAR [None]
  - WEIGHT INCREASED [None]
